FAERS Safety Report 5530724-4 (Version None)
Quarter: 2007Q4

REPORT INFORMATION
  Report Type: 
  Country: None (occurrence: None)
  Receive Date: 20071128
  Receipt Date: 20071128
  Transmission Date: 20080405
  Serious: Yes (Disabling, Other)
  Sender: FDA-Public Use
  Company Number: None

PATIENT
  Age: 70 Year
  Sex: Male
  Weight: 83.9154 kg

DRUGS (1)
  1. AVASTIN [Suspect]
     Indication: ANGIOPATHY
     Dosage: ONE INTRAOCULAR INJECTION OF 0.1CC
     Route: 031
     Dates: start: 20060518

REACTIONS (1)
  - BLINDNESS UNILATERAL [None]
